FAERS Safety Report 5852588-1 (Version None)
Quarter: 2008Q3

REPORT INFORMATION
  Report Type: 
  Country: None (occurrence: None)
  Receive Date: 20080820
  Receipt Date: 20080820
  Transmission Date: 20090109
  Serious: Yes (Other)
  Sender: FDA-Public Use
  Company Number: None

PATIENT
  Age: 72 Year
  Sex: Female
  Weight: 59.4 kg

DRUGS (4)
  1. SORAFENIB [Suspect]
     Indication: BREAST CANCER
     Dosage: SORAFENIB 400MG PO BID
     Route: 048
     Dates: start: 20080718
  2. ZOMETA [Suspect]
     Indication: BREAST CANCER
     Dosage: 3.5MG Q 28 DAYS
     Dates: start: 20080718
  3. RAD001 [Suspect]
     Dates: start: 20080719
  4. FULVESTANT [Suspect]
     Dates: start: 20080708

REACTIONS (3)
  - HERPES ZOSTER [None]
  - MUCOSAL INFLAMMATION [None]
  - RASH [None]
